FAERS Safety Report 21599607 (Version 1)
Quarter: 2022Q4

REPORT INFORMATION
  Report Type: Spontaneous
  Country: US (occurrence: None)
  Receive Date: 20221115
  Receipt Date: 20221115
  Transmission Date: 20230113
  Serious: Yes (Hospitalization)
  Sender: FDA-Public Use
  Company Number: None

PATIENT
  Age: 86 Year
  Sex: Male
  Weight: 88.2 kg

DRUGS (1)
  1. TAXOL [Suspect]
     Active Substance: PACLITAXEL
     Dates: end: 20221024

REACTIONS (4)
  - Erythema [None]
  - Inflammation [None]
  - Cellulitis [None]
  - Oedema [None]

NARRATIVE: CASE EVENT DATE: 20221028
